FAERS Safety Report 8189967-6 (Version None)
Quarter: 2012Q1

REPORT INFORMATION
  Report Type: 
  Country: None (occurrence: None)
  Receive Date: 20120307
  Receipt Date: 20120228
  Transmission Date: 20120608
  Serious: Yes (Hospitalization)
  Sender: FDA-Public Use
  Company Number: AU-JNJFOC-20120203217

PATIENT
  Age: 83 Year
  Sex: Female

DRUGS (6)
  1. TRAMADOL HCL [Suspect]
     Indication: SCIATICA
     Route: 048
     Dates: start: 20091207, end: 20091223
  2. BUPRENORPHINE [Suspect]
     Indication: SCIATICA
     Route: 062
     Dates: start: 20091210, end: 20091220
  3. ASPIRIN [Concomitant]
     Route: 065
  4. MULTI-VITAMINS [Concomitant]
     Route: 065
  5. DURAGESIC-100 [Suspect]
     Indication: SCIATICA
     Route: 062
     Dates: start: 20091221, end: 20091222
  6. DOXEPIN HYDROCHLORIDE [Concomitant]
     Route: 065

REACTIONS (4)
  - ATAXIA [None]
  - VERTIGO [None]
  - NAUSEA [None]
  - DECREASED APPETITE [None]
